FAERS Safety Report 4719857-X (Version None)
Quarter: 2005Q3

REPORT INFORMATION
  Report Type: 
  Country: None (occurrence: None)
  Receive Date: 20050721
  Receipt Date: 20041213
  Transmission Date: 20060218
  Serious: No
  Sender: FDA-Public Use
  Company Number: US-GLAXOSMITHKLINE-A0537110A

PATIENT
  Age: 63 Year
  Sex: Female

DRUGS (6)
  1. AVANDIA [Suspect]
     Dosage: 8MG PER DAY
     Route: 048
     Dates: start: 20041211
  2. TAMOXIFEN CITRATE [Concomitant]
  3. FOSAMAX [Concomitant]
  4. LEVOXYL [Concomitant]
  5. MAXZIDE [Concomitant]
  6. LISINOPRIL [Concomitant]

REACTIONS (1)
  - HYPERGLYCAEMIA [None]
